FAERS Safety Report 8945622 (Version 2)
Quarter: 2012Q4

REPORT INFORMATION
  Report Type: 
  Country: US (occurrence: US)
  Receive Date: 20121205
  Receipt Date: 20121231
  Transmission Date: 20130627
  Serious: Yes (Hospitalization, Other)
  Sender: FDA-Public Use
  Company Number: US-ASTELLAS-2012US010599

PATIENT
  Age: 13 Year
  Sex: Female
  Weight: 47 kg

DRUGS (24)
  1. PROGRAF [Suspect]
     Indication: RENAL TRANSPLANT
     Dosage: UNK
     Route: 065
  2. PROGRAF [Suspect]
     Dosage: 2 mg, bid
     Route: 065
     Dates: start: 20120818
  3. PROGRAF [Suspect]
     Dosage: 1.5 mg, bid
     Route: 065
  4. PROGRAF [Suspect]
     Dosage: 2.5 mg, bid
     Route: 065
  5. CELLCEPT                           /01275102/ [Concomitant]
     Indication: PRODUCT USED FOR UNKNOWN INDICATION
     Dosage: UNK
     Route: 065
  6. PREDNISONE [Concomitant]
     Indication: PRODUCT USED FOR UNKNOWN INDICATION
     Dosage: UNK
     Route: 065
  7. SULFAMETHOXAZOLE [Concomitant]
     Indication: PRODUCT USED FOR UNKNOWN INDICATION
     Dosage: UNK
     Route: 065
  8. BACTRIM [Concomitant]
     Indication: PRODUCT USED FOR UNKNOWN INDICATION
     Dosage: UNK
     Route: 065
  9. PENICILLIN VK [Concomitant]
     Indication: PRODUCT USED FOR UNKNOWN INDICATION
     Dosage: UNK
     Route: 065
  10. ARANESP [Concomitant]
     Indication: PRODUCT USED FOR UNKNOWN INDICATION
     Dosage: UNK
     Route: 065
  11. SODIUM BICARBONATE [Concomitant]
     Indication: PRODUCT USED FOR UNKNOWN INDICATION
     Dosage: UNK
     Route: 065
  12. MYFORTIC [Concomitant]
     Indication: PRODUCT USED FOR UNKNOWN INDICATION
     Dosage: UNK
     Route: 065
  13. POLYSACCHARIDE-IRON COMPLEX [Concomitant]
     Indication: PRODUCT USED FOR UNKNOWN INDICATION
     Dosage: UNK
     Route: 065
  14. CALCITRIOL [Concomitant]
     Indication: PRODUCT USED FOR UNKNOWN INDICATION
     Dosage: UNK
     Route: 065
  15. PROTONIX [Concomitant]
     Indication: PRODUCT USED FOR UNKNOWN INDICATION
     Dosage: UNK
     Route: 065
  16. DEPO-PROVERA [Concomitant]
     Indication: PRODUCT USED FOR UNKNOWN INDICATION
     Dosage: UNK
     Route: 065
  17. MAGNESIUM OXIDE [Concomitant]
     Indication: PRODUCT USED FOR UNKNOWN INDICATION
     Dosage: UNK
     Route: 065
  18. RENVELA [Concomitant]
     Indication: PRODUCT USED FOR UNKNOWN INDICATION
     Dosage: UNK
     Route: 065
  19. OMEPRAZOLE [Concomitant]
     Indication: PRODUCT USED FOR UNKNOWN INDICATION
     Dosage: UNK
     Route: 065
  20. FEXOFENADINE [Concomitant]
     Indication: PRODUCT USED FOR UNKNOWN INDICATION
     Dosage: UNK
     Route: 065
  21. MENINGOCOCCAL VACCINE [Concomitant]
     Indication: PRODUCT USED FOR UNKNOWN INDICATION
     Dosage: UNK
     Route: 065
  22. HEMOPHILUS VACCINES [Concomitant]
     Indication: PRODUCT USED FOR UNKNOWN INDICATION
     Dosage: UNK
     Route: 065
  23. SOLIRIS [Concomitant]
     Indication: HAEMOLYTIC URAEMIC SYNDROME
     Dosage: 1200 mg, Weekly
     Route: 042
     Dates: start: 20111206, end: 201201
  24. SOLIRIS [Concomitant]
     Dosage: 1200 mg, Q2W
     Route: 042
     Dates: start: 2012, end: 20120719

REACTIONS (24)
  - Drug ineffective [Unknown]
  - Renal osteodystrophy [Recovered/Resolved]
  - Renal tubular acidosis [Not Recovered/Not Resolved]
  - Renal transplant [Not Recovered/Not Resolved]
  - Acidosis [Not Recovered/Not Resolved]
  - Kidney transplant rejection [Recovered/Resolved]
  - Urosepsis [Recovered/Resolved]
  - Thrombotic microangiopathy [Recovered/Resolved]
  - Immunosuppressant drug level [Recovering/Resolving]
  - Hypovolaemia [Unknown]
  - Gastroenteritis [Unknown]
  - Renal failure acute [Recovering/Resolving]
  - Blood magnesium decreased [Not Recovered/Not Resolved]
  - Diarrhoea [Unknown]
  - Dehydration [Unknown]
  - Eye swelling [Recovered/Resolved]
  - Dysfunctional uterine bleeding [Not Recovered/Not Resolved]
  - Failure to thrive [Not Recovered/Not Resolved]
  - Abdominal pain [Unknown]
  - Pain in extremity [Recovered/Resolved]
  - Anaemia [Not Recovered/Not Resolved]
  - Hyperglycaemia [Recovered/Resolved]
  - Hyperhidrosis [Not Recovered/Not Resolved]
  - Dermatitis [Not Recovered/Not Resolved]
